FAERS Safety Report 11504702 (Version 1)
Quarter: 2015Q3

REPORT INFORMATION
  Report Type: Spontaneous
  Country: US (occurrence: US)
  Receive Date: 20150915
  Receipt Date: 20150915
  Transmission Date: 20151125
  Serious: No
  Sender: FDA-Public Use
  Company Number: US-ROCHE-773469

PATIENT
  Sex: Female

DRUGS (3)
  1. PEGASYS [Suspect]
     Active Substance: PEGINTERFERON ALFA-2A
     Indication: HEPATITIS C
     Dosage: FORM: PRE FILLED SYRINGE
     Route: 058
     Dates: start: 20110415, end: 20110520
  2. COPEGUS [Suspect]
     Active Substance: RIBAVIRIN
     Dosage: DOSE REDUCED
     Route: 048
  3. COPEGUS [Suspect]
     Active Substance: RIBAVIRIN
     Indication: HEPATITIS C
     Route: 048

REACTIONS (6)
  - Dyspnoea exertional [Unknown]
  - White blood cell count decreased [Not Recovered/Not Resolved]
  - Platelet count decreased [Not Recovered/Not Resolved]
  - Night blindness [Unknown]
  - Injection site bruising [Unknown]
  - Red blood cell count decreased [Not Recovered/Not Resolved]
